FAERS Safety Report 17147254 (Version 9)
Quarter: 2020Q3

REPORT INFORMATION
  Report Type: Spontaneous
  Country: BR (occurrence: BR)
  Receive Date: 20191212
  Receipt Date: 20200902
  Transmission Date: 20201102
  Serious: Yes (Other)
  Sender: FDA-Public Use
  Company Number: BR-GLAXOSMITHKLINE-BR2019AMR223467

PATIENT
  Age: 58 Year
  Sex: Female

DRUGS (5)
  1. BAMIFIX [Concomitant]
     Active Substance: BAMIFYLLINE HYDROCHLORIDE
     Indication: PRODUCT USED FOR UNKNOWN INDICATION
     Dosage: 300 MG, BID
  2. NUCALA [Suspect]
     Active Substance: MEPOLIZUMAB
     Indication: CHRONIC OBSTRUCTIVE PULMONARY DISEASE
  3. ASPIRINA [Concomitant]
     Active Substance: ASPIRIN
     Indication: PRODUCT USED FOR UNKNOWN INDICATION
     Dosage: UNK UNK, BID
  4. ALENDRONATE SODIUM. [Concomitant]
     Active Substance: ALENDRONATE SODIUM
     Indication: OSTEOPOROSIS
     Dosage: UNK
  5. NUCALA [Suspect]
     Active Substance: MEPOLIZUMAB
     Indication: ASTHMA
     Dosage: 100 MG
     Dates: start: 20191129

REACTIONS (18)
  - Oxygen saturation decreased [Unknown]
  - Inappropriate schedule of product administration [Unknown]
  - Dyspnoea exertional [Not Recovered/Not Resolved]
  - Apnoea [Unknown]
  - Fatigue [Unknown]
  - Productive cough [Not Recovered/Not Resolved]
  - Tooth injury [Recovered/Resolved]
  - Dyspnoea [Unknown]
  - Therapeutic product effect incomplete [Unknown]
  - Asthmatic crisis [Not Recovered/Not Resolved]
  - Dental discomfort [Recovered/Resolved]
  - Respiratory rate decreased [Unknown]
  - Product dose omission issue [Unknown]
  - Cough [Not Recovered/Not Resolved]
  - Device breakage [Unknown]
  - Condition aggravated [Unknown]
  - Social problem [Unknown]
  - Choking [Unknown]

NARRATIVE: CASE EVENT DATE: 20191210
